FAERS Safety Report 22890203 (Version 7)
Quarter: 2024Q4

REPORT INFORMATION
  Report Type: Spontaneous
  Country: CA (occurrence: CA)
  Receive Date: 20230831
  Receipt Date: 20241008
  Transmission Date: 20250115
  Serious: Yes (Other)
  Sender: BAUSCH AND LOMB
  Company Number: CA-BAUSCH-BL-2023-013106

PATIENT
  Age: 82 Year
  Sex: Female
  Weight: 83 kg

DRUGS (83)
  1. METFORMIN [Suspect]
     Active Substance: METFORMIN HYDROCHLORIDE
     Indication: Product used for unknown indication
     Dosage: METFORMIN HYDROCHLORIDE
     Route: 065
  2. DICLOFENAC [Suspect]
     Active Substance: DICLOFENAC
     Indication: Pain
     Dosage: DOSAGE FORM - NOT SPECIFIED
     Route: 065
  3. DICLOFENAC [Suspect]
     Active Substance: DICLOFENAC
     Dosage: DICLOFENAC SODIUM
     Route: 065
  4. ATENOLOL [Suspect]
     Active Substance: ATENOLOL
     Indication: Product used for unknown indication
     Route: 065
  5. ATORVASTATIN CALCIUM [Suspect]
     Active Substance: ATORVASTATIN CALCIUM
     Indication: Product used for unknown indication
     Route: 065
  6. ATORVASTATIN CALCIUM [Suspect]
     Active Substance: ATORVASTATIN CALCIUM
     Route: 065
  7. ATORVASTATIN CALCIUM [Suspect]
     Active Substance: ATORVASTATIN CALCIUM
     Route: 065
  8. ATORVASTATIN CALCIUM [Suspect]
     Active Substance: ATORVASTATIN CALCIUM
     Route: 065
  9. CITALOPRAM [Suspect]
     Active Substance: CITALOPRAM
     Indication: Product used for unknown indication
     Route: 065
  10. CITALOPRAM [Suspect]
     Active Substance: CITALOPRAM
     Route: 065
  11. CITALOPRAM [Suspect]
     Active Substance: CITALOPRAM
     Dosage: CITALOPRAM HYDROBROMIDE
     Route: 065
  12. CITALOPRAM [Suspect]
     Active Substance: CITALOPRAM
     Dosage: CITALOPRAM HYDROBROMIDE
     Route: 065
  13. LANSOPRAZOLE [Suspect]
     Active Substance: LANSOPRAZOLE
     Indication: Product used for unknown indication
     Dosage: DELAYED RELEASE
     Route: 065
  14. RANITIDINE [Suspect]
     Active Substance: RANITIDINE
     Indication: Product used for unknown indication
     Route: 065
  15. RANITIDINE [Suspect]
     Active Substance: RANITIDINE
     Route: 065
  16. RANITIDINE [Suspect]
     Active Substance: RANITIDINE
     Route: 065
  17. RANITIDINE [Suspect]
     Active Substance: RANITIDINE
     Dosage: RANITIDINE HYDROCHLORIDE
     Route: 065
  18. RANITIDINE [Suspect]
     Active Substance: RANITIDINE
     Dosage: RANITIDINE HYDROCHLORIDE
     Route: 065
  19. ATENOLOL [Concomitant]
     Active Substance: ATENOLOL
     Indication: Product used for unknown indication
     Route: 065
  20. BETAMETHASONE DIPROPIONATE\CALCIPOTRIENE [Concomitant]
     Active Substance: BETAMETHASONE DIPROPIONATE\CALCIPOTRIENE
     Indication: Product used for unknown indication
     Route: 065
  21. CALCIUM CARBONATE\ETIDRONATE DISODIUM [Concomitant]
     Active Substance: CALCIUM CARBONATE\ETIDRONATE DISODIUM
     Indication: Product used for unknown indication
     Route: 065
  22. HYDROXYCHLOROQUINE [Concomitant]
     Active Substance: HYDROXYCHLOROQUINE
     Indication: Product used for unknown indication
     Route: 065
  23. HYDROXYCHLOROQUINE [Concomitant]
     Active Substance: HYDROXYCHLOROQUINE
     Route: 065
  24. LIPITOR [Concomitant]
     Active Substance: ATORVASTATIN CALCIUM
     Indication: Product used for unknown indication
     Dosage: NOT SPECIFIED
     Route: 065
  25. LIPITOR [Concomitant]
     Active Substance: ATORVASTATIN CALCIUM
     Dosage: NOT SPECIFIED
     Route: 065
  26. LIPITOR [Concomitant]
     Active Substance: ATORVASTATIN CALCIUM
     Dosage: NOT SPECIFIED
     Route: 065
  27. LIPITOR [Concomitant]
     Active Substance: ATORVASTATIN CALCIUM
     Dosage: NOT SPECIFIED
     Route: 065
  28. LIPITOR [Concomitant]
     Active Substance: ATORVASTATIN CALCIUM
     Dosage: NOT SPECIFIED
     Route: 065
  29. METHOTREXATE [Concomitant]
     Active Substance: METHOTREXATE
     Indication: Product used for unknown indication
     Dosage: DOSAGE FORM - NOT SPECIFIED
     Route: 065
  30. METHOTREXATE [Concomitant]
     Active Substance: METHOTREXATE
     Dosage: NOT SPECIFIED
     Route: 065
  31. METHOTREXATE [Concomitant]
     Active Substance: METHOTREXATE
     Route: 065
  32. MYOCHRYSINE [Concomitant]
     Active Substance: GOLD SODIUM THIOMALATE
     Indication: Product used for unknown indication
     Route: 030
  33. TEMAZEPAM [Concomitant]
     Active Substance: TEMAZEPAM
     Indication: Product used for unknown indication
     Route: 065
  34. TYLENOL [Concomitant]
     Active Substance: ACETAMINOPHEN
     Indication: Pain
     Dosage: NOT SPECIFIED
     Route: 065
  35. ACETAMINOPHEN\CAFFEINE\CODEINE PHOSPHATE [Concomitant]
     Active Substance: ACETAMINOPHEN\CAFFEINE\CODEINE PHOSPHATE
     Indication: Product used for unknown indication
     Route: 065
  36. ASPIRIN [Concomitant]
     Active Substance: ASPIRIN
     Indication: Product used for unknown indication
     Route: 065
  37. FLUTICASONE FUROATE [Concomitant]
     Active Substance: FLUTICASONE FUROATE
     Indication: Product used for unknown indication
     Dosage: SPRAY, METERED DOSE
     Route: 065
  38. FLUTICASONE FUROATE [Concomitant]
     Active Substance: FLUTICASONE FUROATE
     Route: 065
  39. CALCIUM [Concomitant]
     Active Substance: CALCIUM
     Indication: Product used for unknown indication
     Dosage: CALCIUM CARBONATE
     Route: 065
  40. CALCIUM [Concomitant]
     Active Substance: CALCIUM
     Dosage: CALCIUM
     Route: 065
  41. CALCIUM CARBONATE;POTASSIUM BICARBONATE;SODIUM ALGINATE [Concomitant]
     Indication: Product used for unknown indication
     Route: 065
  42. CELEBREX [Concomitant]
     Active Substance: CELECOXIB
     Indication: Product used for unknown indication
     Route: 065
  43. CELEBREX [Concomitant]
     Active Substance: CELECOXIB
     Route: 065
  44. CELEBREX [Concomitant]
     Active Substance: CELECOXIB
     Route: 065
  45. COLACE [Concomitant]
     Active Substance: DOCUSATE SODIUM
     Indication: Product used for unknown indication
     Dosage: NOT SPECIFIED
     Route: 065
  46. COLACE [Concomitant]
     Active Substance: DOCUSATE SODIUM
     Dosage: NOT SPECIFIED
     Route: 065
  47. COLACE [Concomitant]
     Active Substance: DOCUSATE SODIUM
     Dosage: NOT SPECIFIED
     Route: 065
  48. ERGOCALCIFEROL [Concomitant]
     Active Substance: ERGOCALCIFEROL
     Indication: Product used for unknown indication
     Route: 065
  49. FUROSEMIDE [Concomitant]
     Active Substance: FUROSEMIDE
     Indication: Product used for unknown indication
     Dosage: NOT SPECIFIED
     Route: 065
  50. FUROSEMIDE [Concomitant]
     Active Substance: FUROSEMIDE
     Dosage: FUROSEMIDE SODIUM
  51. GABAPENTIN [Concomitant]
     Active Substance: GABAPENTIN
     Indication: Product used for unknown indication
     Dosage: NOT SPECIFIED
     Route: 065
  52. ASIAN GINSENG [Concomitant]
     Active Substance: ASIAN GINSENG
     Indication: Product used for unknown indication
     Route: 065
  53. ASIAN GINSENG [Concomitant]
     Active Substance: ASIAN GINSENG
     Route: 065
  54. IRON [Concomitant]
     Active Substance: IRON
     Indication: Product used for unknown indication
     Dosage: IRON (FERROUS SULFATE)
     Route: 065
  55. LASIX [Concomitant]
     Active Substance: FUROSEMIDE
     Indication: Product used for unknown indication
     Dosage: NOT SPECIFIED
     Route: 065
  56. LASIX [Concomitant]
     Active Substance: FUROSEMIDE
     Dosage: NOT SPECIFIED
     Route: 065
  57. MAGNESIUM [Concomitant]
     Active Substance: MAGNESIUM
     Indication: Product used for unknown indication
     Dosage: NOT SPECIFIED
     Route: 065
  58. MAGNESIUM [Concomitant]
     Active Substance: MAGNESIUM
     Dosage: MAGNESIUM CARBONATE
     Route: 065
  59. LORATADINE [Concomitant]
     Active Substance: LORATADINE
     Indication: Product used for unknown indication
     Dosage: NOT SPECIFIED
     Route: 065
  60. METOPROLOL TARTRATE [Concomitant]
     Active Substance: METOPROLOL TARTRATE
     Indication: Product used for unknown indication
     Route: 065
  61. FISH OIL [Concomitant]
     Active Substance: FISH OIL
     Indication: Product used for unknown indication
     Route: 065
  62. FISH OIL [Concomitant]
     Active Substance: FISH OIL
     Route: 065
  63. PANTOPRAZOLE [Concomitant]
     Active Substance: PANTOPRAZOLE
     Indication: Product used for unknown indication
     Dosage: NOT SPECIFIED
     Route: 065
  64. PANTOPRAZOLE [Concomitant]
     Active Substance: PANTOPRAZOLE
     Dosage: PANTOPRAZOLE SODIUM
     Route: 065
  65. PANTOPRAZOLE [Concomitant]
     Active Substance: PANTOPRAZOLE
     Dosage: PANTOPRAZOLE SODIUM SESQUIHYDRATE
     Route: 065
  66. TOVIAZ [Concomitant]
     Active Substance: FESOTERODINE FUMARATE
     Indication: Product used for unknown indication
     Dosage: EXTENDED RELEASE
     Route: 065
  67. TOVIAZ [Concomitant]
     Active Substance: FESOTERODINE FUMARATE
     Dosage: FESOTERODINE FUMARATE
     Route: 065
  68. .ALPHA.-TOCOPHEROL [Concomitant]
     Active Substance: .ALPHA.-TOCOPHEROL
     Indication: Product used for unknown indication
     Route: 065
  69. XANTOFYL PALMITATE [Concomitant]
     Active Substance: XANTOFYL PALMITATE
     Indication: Product used for unknown indication
     Route: 065
  70. ZINC [Concomitant]
     Active Substance: ZINC
     Indication: Product used for unknown indication
     Route: 065
  71. CALTRATE [Concomitant]
     Active Substance: CALCIUM CARBONATE
     Indication: Product used for unknown indication
     Route: 065
  72. BETAMETHASONE DIPROPIONATE\CALCIPOTRIENE MONOHYDRATE [Concomitant]
     Active Substance: BETAMETHASONE DIPROPIONATE\CALCIPOTRIENE MONOHYDRATE
     Indication: Product used for unknown indication
     Route: 065
  73. ASPIRIN [Concomitant]
     Active Substance: ASPIRIN
     Indication: Product used for unknown indication
     Route: 065
  74. ASPIRIN [Concomitant]
     Active Substance: ASPIRIN
     Dosage: ASPIRIN
  75. EVISTA [Concomitant]
     Active Substance: RALOXIFENE HYDROCHLORIDE
     Indication: Product used for unknown indication
  76. RISEDRONATE SODIUM [Concomitant]
     Active Substance: RISEDRONATE SODIUM
     Indication: Product used for unknown indication
     Dosage: NOT SPECIFIED
  77. RISEDRONATE SODIUM [Concomitant]
     Active Substance: RISEDRONATE SODIUM
     Dosage: NOT SPECIFIED
  78. SULFASALAZINE [Concomitant]
     Active Substance: SULFASALAZINE
     Indication: Product used for unknown indication
     Dosage: NOT SPECIFIED
  79. SULFASALAZINE [Concomitant]
     Active Substance: SULFASALAZINE
     Dosage: NOT SPECIFIED
  80. FERROUS SULFATE [Concomitant]
     Active Substance: FERROUS SULFATE
     Indication: Product used for unknown indication
     Route: 065
  81. RALOXIFENE HYDROCHLORIDE [Concomitant]
     Active Substance: RALOXIFENE HYDROCHLORIDE
     Indication: Product used for unknown indication
     Route: 065
  82. ACETAMINOPHEN AND CODEINE [Concomitant]
     Active Substance: ACETAMINOPHEN\CODEINE PHOSPHATE
     Indication: Product used for unknown indication
     Route: 065
  83. CELECOXIB [Concomitant]
     Active Substance: CELECOXIB
     Indication: Product used for unknown indication
     Route: 065

REACTIONS (43)
  - Arthralgia [Unknown]
  - Arthritis [Unknown]
  - Arthropathy [Unknown]
  - Body height decreased [Unknown]
  - Bone density decreased [Unknown]
  - Dyslipidaemia [Unknown]
  - Dysstasia [Unknown]
  - Fall [Unknown]
  - Cholelithiasis [Unknown]
  - Monoclonal immunoglobulin present [Unknown]
  - Hypothalamo-pituitary disorder [Unknown]
  - Fibrosis [Unknown]
  - Joint stiffness [Unknown]
  - Finger deformity [Unknown]
  - Gait disturbance [Unknown]
  - Hepatic steatosis [Unknown]
  - Joint range of motion decreased [Unknown]
  - Limb injury [Unknown]
  - Liver disorder [Unknown]
  - Movement disorder [Unknown]
  - Musculoskeletal pain [Unknown]
  - Musculoskeletal stiffness [Unknown]
  - Nephropathy [Unknown]
  - Osteoarthritis [Unknown]
  - Osteoporosis [Unknown]
  - Psoriasis [Unknown]
  - Psoriatic arthropathy [Unknown]
  - Skin disorder [Unknown]
  - Sciatica [Unknown]
  - Synovitis [Unknown]
  - Back pain [Unknown]
  - Renal cyst [Unknown]
  - Wrist deformity [Unknown]
  - Foot deformity [Unknown]
  - Carbuncle [Unknown]
  - Renal failure [Unknown]
  - Purpura [Unknown]
  - Diabetes mellitus [Unknown]
  - Overweight [Unknown]
  - Hypertension [Unknown]
  - Chest pain [Unknown]
  - Asthenia [Unknown]
  - Hepatic enzyme increased [Unknown]
